FAERS Safety Report 14273605 (Version 1)
Quarter: 2017Q4

REPORT INFORMATION
  Report Type: Spontaneous
  Country: US (occurrence: US)
  Receive Date: 20171212
  Receipt Date: 20171212
  Transmission Date: 20180321
  Serious: No
  Sender: FDA-Public Use
  Company Number: US-BAYER-2017-237720

PATIENT
  Age: 36 Year
  Sex: Female

DRUGS (3)
  1. CLARITIN-D 24 HOUR [Suspect]
     Active Substance: LORATADINE\PSEUDOEPHEDRINE SULFATE
     Indication: NASOPHARYNGITIS
     Dosage: ACCIDENTALLY TOOK 1 CLARITIN AT 18:00 AND ANOTHER 1 CLARITIN AT 19:00
     Route: 048
     Dates: start: 20171206, end: 20171206
  2. CLARITIN-D 24 HOUR [Suspect]
     Active Substance: LORATADINE\PSEUDOEPHEDRINE SULFATE
     Indication: NASAL CONGESTION
  3. CLARITIN-D 24 HOUR [Suspect]
     Active Substance: LORATADINE\PSEUDOEPHEDRINE SULFATE
     Indication: HYPERSENSITIVITY
     Dosage: 1 DF EVERY 24 HOURS, PRN
     Dates: start: 20171201, end: 20171206

REACTIONS (7)
  - Vomiting [Unknown]
  - Cough [Unknown]
  - Feeling abnormal [None]
  - Extra dose administered [Not Recovered/Not Resolved]
  - Dizziness [Unknown]
  - Abdominal pain upper [Unknown]
  - Nasopharyngitis [Unknown]

NARRATIVE: CASE EVENT DATE: 201712
